FAERS Safety Report 8308757-4 (Version None)
Quarter: 2012Q2

REPORT INFORMATION
  Report Type: 
  Country: None (occurrence: None)
  Receive Date: 20120424
  Receipt Date: 20120418
  Transmission Date: 20120825
  Serious: Yes (Hospitalization, Other)
  Sender: FDA-Public Use
  Company Number: CA-PFIZER INC-2012095996

PATIENT
  Age: 32 Year
  Sex: Male

DRUGS (4)
  1. HYZAAR [Concomitant]
     Indication: HYPERTENSION
     Dosage: 100/25 MG
  2. LYRICA [Suspect]
     Indication: PAIN
     Dosage: 75 MG, 1X/DAY
     Route: 048
     Dates: start: 20110101, end: 20110101
  3. DILTIAZEM [Concomitant]
     Indication: HYPERTENSION
     Dosage: 360 MG, 1X/DAY
  4. LYRICA [Suspect]
     Indication: NERVE INJURY
     Dosage: 450 MG, 1X/DAY
     Route: 048
     Dates: start: 20110901

REACTIONS (11)
  - BLOOD URINE PRESENT [None]
  - VISION BLURRED [None]
  - CARDIAC FLUTTER [None]
  - FATIGUE [None]
  - OEDEMA PERIPHERAL [None]
  - MUSCULAR WEAKNESS [None]
  - DYSPNOEA [None]
  - PALPITATIONS [None]
  - PULMONARY OEDEMA [None]
  - HYPERTENSION [None]
  - IMPAIRED WORK ABILITY [None]
